FAERS Safety Report 25741123 (Version 1)
Quarter: 2025Q3

REPORT INFORMATION
  Report Type: Spontaneous
  Country: US (occurrence: US)
  Receive Date: 20250829
  Receipt Date: 20250829
  Transmission Date: 20251020
  Serious: No
  Sender: GLAND PHARMA LTD
  Company Number: US-GLANDPHARMA-US-2025GLNSPO01700

PATIENT
  Sex: Female

DRUGS (1)
  1. TRAVOPROST OPHTHALMIC SOLUTON [Suspect]
     Active Substance: TRAVOPROST
     Indication: Product used for unknown indication

REACTIONS (2)
  - Dizziness [Unknown]
  - Lacrimation increased [Unknown]
